FAERS Safety Report 11184265 (Version 1)
Quarter: 2015Q2

REPORT INFORMATION
  Report Type: Spontaneous
  Country: ES (occurrence: None)
  Receive Date: 20150610
  Receipt Date: 20150610
  Transmission Date: 20150821
  Serious: Yes (Life-Threatening)
  Sender: FDA-Public Use
  Company Number: FK201502570

PATIENT
  Age: 45 Year

DRUGS (1)
  1. PROPOFOL 2% (MANUFACTURER UNKNOWN) (PROPOFOL) (PROPOFOL) [Suspect]
     Active Substance: PROPOFOL
     Indication: INDUCTION OF ANAESTHESIA
     Dosage: 20 ML, 1 IN 1 TOTAL
     Route: 040
     Dates: start: 20150425, end: 20150425

REACTIONS (2)
  - Hypotension [None]
  - Drug administration error [None]

NARRATIVE: CASE EVENT DATE: 20150425
